FAERS Safety Report 6507211-X (Version None)
Quarter: 2009Q4

REPORT INFORMATION
  Report Type: 
  Country: None (occurrence: None)
  Receive Date: 20091221
  Receipt Date: 20091214
  Transmission Date: 20100525
  Serious: Yes (Hospitalization)
  Sender: FDA-Public Use
  Company Number: PHHO2009US14890

PATIENT
  Sex: Female

DRUGS (4)
  1. CERTICAN [Suspect]
     Indication: RENAL TRANSPLANT
     Dosage: 1.5 MG / DAY
     Route: 048
     Dates: start: 19990817
  2. LISINOPRIL [Concomitant]
  3. LIPITOR [Concomitant]
  4. AMLODIPINE [Concomitant]

REACTIONS (3)
  - CHEST PAIN [None]
  - CONCOMITANT DISEASE PROGRESSION [None]
  - MYOCARDIAL INFARCTION [None]
